FAERS Safety Report 5389710-X (Version None)
Quarter: 2007Q3

REPORT INFORMATION
  Report Type: 
  Country: None (occurrence: None)
  Receive Date: 20070717
  Receipt Date: 20070713
  Transmission Date: 20080115
  Serious: Yes (Death)
  Sender: FDA-Public Use
  Company Number: SA-ROXANE LABORATORIES, INC-2007-BP-17398RO

PATIENT
  Age: 21 Year
  Sex: Female

DRUGS (3)
  1. METHOTREXATE [Suspect]
     Indication: CHORIOCARCINOMA
     Route: 030
  2. PROPYLTHIOURACIL [Concomitant]
     Indication: HYPERTHYROIDISM
  3. INDERAL [Concomitant]
     Indication: HYPERTHYROIDISM

REACTIONS (10)
  - ANAEMIA [None]
  - DRUG TOXICITY [None]
  - HYPOXIA [None]
  - LUNG INFILTRATION [None]
  - PULMONARY HAEMORRHAGE [None]
  - RESPIRATORY ACIDOSIS [None]
  - RESPIRATORY DISORDER [None]
  - RESPIRATORY FAILURE [None]
  - TACHYCARDIA [None]
  - TUMOUR LYSIS SYNDROME [None]
